FAERS Safety Report 7853554-7 (Version None)
Quarter: 2011Q4

REPORT INFORMATION
  Report Type: 
  Country: None (occurrence: None)
  Receive Date: 20111026
  Receipt Date: 20111020
  Transmission Date: 20120403
  Serious: Yes (Hospitalization)
  Sender: FDA-Public Use
  Company Number: FR-CEPHALON-2011005374

PATIENT
  Sex: Male
  Weight: 81 kg

DRUGS (5)
  1. ARMODAFINIL [Suspect]
     Indication: MAJOR DEPRESSION
     Route: 048
     Dates: start: 20110913, end: 20111013
  2. PRAVASTATIN [Concomitant]
     Dates: start: 20090601
  3. PRAZEPAM [Concomitant]
     Dates: start: 20111012, end: 20111012
  4. LACTULOSE [Concomitant]
     Dates: start: 20100309
  5. ABILIFY [Concomitant]
     Dates: start: 20100215

REACTIONS (1)
  - MYOCARDIAL INFARCTION [None]
